APPROVED DRUG PRODUCT: FLUORESCEIN SODIUM AND BENOXINATE HYDROCHLORIDE
Active Ingredient: BENOXINATE HYDROCHLORIDE; FLUORESCEIN SODIUM
Strength: 0.4%;0.3%
Dosage Form/Route: SOLUTION/DROPS;OPHTHALMIC
Application: N211039 | Product #001
Applicant: BAUSCH AND LOMB IRELAND LTD
Approved: Mar 9, 2020 | RLD: Yes | RS: Yes | Type: RX

PATENTS:
Patent 10842872 | Expires: Nov 15, 2037
Patent 10632197 | Expires: Nov 15, 2037
Patent 10293047 | Expires: Nov 15, 2037